FAERS Safety Report 14397549 (Version 1)
Quarter: 2018Q1

REPORT INFORMATION
  Report Type: Spontaneous
  Country: US (occurrence: US)
  Receive Date: 20180116
  Receipt Date: 20180116
  Transmission Date: 20180509
  Serious: No
  Sender: FDA-Public Use
  Company Number: US-ALLERGAN-1729257US

PATIENT
  Age: 49 Year
  Sex: Female

DRUGS (5)
  1. BOTOX COSMETIC [Suspect]
     Active Substance: ONABOTULINUMTOXINA
     Indication: SKIN WRINKLING
  2. PROGESTERONE. [Concomitant]
     Active Substance: PROGESTERONE
     Dosage: UNK
     Route: 067
     Dates: start: 20170706, end: 20170706
  3. BOTOX COSMETIC [Suspect]
     Active Substance: ONABOTULINUMTOXINA
     Indication: SKIN WRINKLING
     Dosage: 40 UNITS, SINGLE
     Route: 030
     Dates: start: 20170706, end: 20170706
  4. HYDROCODONE [Concomitant]
     Active Substance: HYDROCODONE
     Route: 048
  5. BOTOX COSMETIC [Suspect]
     Active Substance: ONABOTULINUMTOXINA
     Indication: SKIN WRINKLING

REACTIONS (12)
  - Swelling [Unknown]
  - Neck pain [Unknown]
  - Urticaria [Unknown]
  - Anxiety [Unknown]
  - Somnolence [Unknown]
  - Asthenia [Unknown]
  - Drug hypersensitivity [Not Recovered/Not Resolved]
  - Lethargy [Unknown]
  - Insomnia [Unknown]
  - Paraesthesia oral [Unknown]
  - Throat irritation [Unknown]
  - Pain [Unknown]

NARRATIVE: CASE EVENT DATE: 20170706
